FAERS Safety Report 22197092 (Version 1)
Quarter: 2023Q2

REPORT INFORMATION
  Report Type: Report from Study
  Country: US (occurrence: US)
  Receive Date: 20230411
  Receipt Date: 20230411
  Transmission Date: 20230721
  Serious: Yes (Life-Threatening, Hospitalization, Other)
  Sender: FDA-Public Use
  Company Number: US-GILEAD-2023-0622936

PATIENT
  Age: 62 Year
  Sex: Male
  Weight: 156.9 kg

DRUGS (4)
  1. SACITUZUMAB GOVITECAN-HZIY [Suspect]
     Active Substance: SACITUZUMAB GOVITECAN-HZIY
     Indication: Glioblastoma
     Dosage: 10 MG/KG
     Route: 065
     Dates: start: 20230313, end: 20230322
  2. SACITUZUMAB GOVITECAN-HZIY [Suspect]
     Active Substance: SACITUZUMAB GOVITECAN-HZIY
     Dosage: 10 MG/KG
     Route: 065
     Dates: start: 20230403
  3. SODIUM CHLORIDE [Concomitant]
     Active Substance: SODIUM CHLORIDE
     Dosage: 1 L
     Dates: start: 20230403
  4. DEXAMETHASONE [Concomitant]
     Active Substance: DEXAMETHASONE
     Dosage: UNK
     Dates: start: 20230403

REACTIONS (1)
  - Altered state of consciousness [Unknown]

NARRATIVE: CASE EVENT DATE: 20230403
